FAERS Safety Report 24330085 (Version 2)
Quarter: 2024Q4

REPORT INFORMATION
  Report Type: Report from Study
  Country: DE (occurrence: DE)
  Receive Date: 20240917
  Receipt Date: 20241207
  Transmission Date: 20250114
  Serious: Yes (Hospitalization)
  Sender: ABBVIE
  Company Number: DE-ABBVIE-5923430

PATIENT
  Age: 59 Year
  Sex: Female

DRUGS (6)
  1. RINVOQ [Suspect]
     Active Substance: UPADACITINIB
     Indication: Axial spondyloarthritis
     Route: 048
     Dates: start: 20230909
  2. COSENTYX [Concomitant]
     Active Substance: SECUKINUMAB
     Indication: Product used for unknown indication
     Dates: start: 20190402, end: 20200301
  3. ETORICOXIB [Concomitant]
     Active Substance: ETORICOXIB
     Indication: Product used for unknown indication
     Dates: start: 20191219, end: 20210428
  4. IBUPROFEN [Concomitant]
     Active Substance: IBUPROFEN
     Indication: Product used for unknown indication
     Dates: start: 20190909, end: 20191219
  5. CELECOXIB [Concomitant]
     Active Substance: CELECOXIB
     Indication: Product used for unknown indication
     Dates: start: 20210429, end: 20220302
  6. NAPROXEN [Concomitant]
     Active Substance: NAPROXEN
     Indication: Product used for unknown indication
     Dates: start: 20221011, end: 20230115

REACTIONS (11)
  - Chest pain [Recovered/Resolved]
  - Tendon dislocation [Recovered/Resolved]
  - Eye inflammation [Unknown]
  - Back pain [Recovered/Resolved]
  - Sacral pain [Recovered/Resolved]
  - Arthralgia [Recovered/Resolved]
  - Ligament injury [Recovered/Resolved]
  - Gastrointestinal disorder [Unknown]
  - Pain [Unknown]
  - Joint injury [Unknown]
  - COVID-19 [Unknown]

NARRATIVE: CASE EVENT DATE: 20230505
